FAERS Safety Report 23866699 (Version 1)
Quarter: 2024Q2

REPORT INFORMATION
  Report Type: Spontaneous
  Country: DE (occurrence: DE)
  Receive Date: 20240517
  Receipt Date: 20240517
  Transmission Date: 20240716
  Serious: Yes (Life-Threatening, Hospitalization, Other)
  Sender: FDA-Public Use
  Company Number: DE-BAYER-2016-178738

PATIENT
  Age: 23 Year
  Sex: Male
  Weight: 74 kg

DRUGS (6)
  1. DICLOFENAC [Suspect]
     Active Substance: DICLOFENAC
     Indication: Suicide attempt
     Dosage: 1425 MILLIGRAM,UNSPECIFIED INTERVAL
     Route: 048
  2. DIPYRONE [Suspect]
     Active Substance: DIPYRONE
     Indication: Suicide attempt
     Dosage: 21000 MILLIGRAM
     Route: 048
  3. DIPYRONE [Suspect]
     Active Substance: DIPYRONE
     Indication: Product used for unknown indication
     Dosage: 21000 MILLIGRAM
     Route: 048
  4. PHENPROCOUMON [Suspect]
     Active Substance: PHENPROCOUMON
     Indication: Suicide attempt
     Dosage: 31.5 MILLIGRAM
     Route: 048
  5. XARELTO [Suspect]
     Active Substance: RIVAROXABAN
     Indication: Deep vein thrombosis
     Dosage: 1960 MILLIGRAM
     Route: 048
  6. XARELTO [Suspect]
     Active Substance: RIVAROXABAN
     Indication: Suicide attempt

REACTIONS (13)
  - Platelet dysfunction [Unknown]
  - Haematuria [Recovered/Resolved]
  - Toxicity to various agents [Recovered/Resolved]
  - Suicide attempt [Recovered/Resolved]
  - Vomiting [Recovered/Resolved]
  - Coagulopathy [Recovering/Resolving]
  - Coagulation test abnormal [Recovered/Resolved]
  - International normalised ratio increased [Unknown]
  - Anticoagulation drug level increased [Unknown]
  - Intentional overdose [Recovered/Resolved]
  - Poisoning [Unknown]
  - Anticoagulation drug level above therapeutic [Recovered/Resolved]
  - Overdose [Recovered/Resolved]
